FAERS Safety Report 24968300 (Version 2)
Quarter: 2025Q1

REPORT INFORMATION
  Report Type: Report from Study
  Country: US (occurrence: US)
  Receive Date: 20250214
  Receipt Date: 20250224
  Transmission Date: 20250409
  Serious: Yes (Other)
  Sender: BRISTOL-MYERS SQUIBB COMPANY
  Company Number: US-BRISTOL-MYERS SQUIBB COMPANY-2025-019661

PATIENT
  Age: 40 Year
  Sex: Female
  Weight: 61.23 kg

DRUGS (1)
  1. ORENCIA [Suspect]
     Active Substance: ABATACEPT
     Indication: Arthritis
     Dosage: STRENGTH AND PRESENTATION OF THE AE : 125MG/ML DRUG
     Route: 058

REACTIONS (3)
  - Device safety feature issue [Unknown]
  - Device delivery system issue [Unknown]
  - Device operational issue [Unknown]

NARRATIVE: CASE EVENT DATE: 20250204
